FAERS Safety Report 13501861 (Version 1)
Quarter: 2017Q2

REPORT INFORMATION
  Report Type: Report from Study
  Country: US (occurrence: US)
  Receive Date: 20170502
  Receipt Date: 20170502
  Transmission Date: 20170830
  Serious: Yes (Hospitalization, Other)
  Sender: FDA-Public Use
  Company Number: US-ROCHE-1915588

PATIENT
  Age: 59 Year
  Sex: Female
  Weight: 95.34 kg

DRUGS (24)
  1. DYMISTA [Concomitant]
     Active Substance: AZELASTINE HYDROCHLORIDE\FLUTICASONE PROPIONATE
     Dosage: 1 SEN
     Route: 065
  2. CLARITIN-D NOS [Concomitant]
     Active Substance: LORATADINE\PSEUDOEPHEDRINE SULFATE
     Indication: RHINITIS
     Dosage: 1 TAB DAILY
     Route: 048
  3. DULERA [Concomitant]
     Active Substance: FORMOTEROL FUMARATE DIHYDRATE\MOMETASONE FUROATE
     Route: 065
  4. OXYCODONE HYDROCHLORIDE. [Concomitant]
     Active Substance: OXYCODONE HYDROCHLORIDE
  5. XOLAIR [Suspect]
     Active Substance: OMALIZUMAB
     Indication: RHINITIS
     Route: 058
     Dates: start: 20140709
  6. AMBIEN [Concomitant]
     Active Substance: ZOLPIDEM TARTRATE
  7. DYMISTA [Concomitant]
     Active Substance: AZELASTINE HYDROCHLORIDE\FLUTICASONE PROPIONATE
     Indication: RHINITIS
     Dosage: 137-50 MCG/ACT AS DIRECTED?1 SPRAY PER NOSTRIL
     Route: 045
  8. FERREX [Concomitant]
  9. VENTOLIN HFA [Concomitant]
     Active Substance: ALBUTEROL SULFATE
     Dosage: 108 MCG/ACT
     Route: 065
  10. XOLAIR [Suspect]
     Active Substance: OMALIZUMAB
     Indication: ASTHMA
     Route: 058
  11. BREO ELLIPTA [Concomitant]
     Active Substance: FLUTICASONE FUROATE\VILANTEROL TRIFENATATE
     Indication: ASTHMA
     Dosage: 200/25 MG INHALED
     Route: 065
  12. EPIPEN [Concomitant]
     Active Substance: EPINEPHRINE
     Dosage: 0.3 MG/0.3 ML?IN ANTEROLATERAL THIGH
     Route: 030
  13. TOPIRAMATE. [Concomitant]
     Active Substance: TOPIRAMATE
     Route: 065
  14. PREDNISONE. [Concomitant]
     Active Substance: PREDNISONE
     Route: 065
     Dates: start: 201310
  15. ALVESCO [Concomitant]
     Active Substance: CICLESONIDE
     Route: 065
  16. ALBUTEROL SULFATE. [Concomitant]
     Active Substance: ALBUTEROL SULFATE
     Dosage: 2.5 MG/3 ML
     Route: 065
  17. ALLOPURINOL. [Concomitant]
     Active Substance: ALLOPURINOL
     Indication: GOUT
     Route: 048
  18. HYZAAR [Concomitant]
     Active Substance: HYDROCHLOROTHIAZIDE\LOSARTAN POTASSIUM
     Dosage: 100-25 MG
     Route: 065
  19. LIPITOR [Concomitant]
     Active Substance: ATORVASTATIN CALCIUM
  20. FLUCONAZOLE. [Concomitant]
     Active Substance: FLUCONAZOLE
     Dosage: IN SODIUM CHLORIDE (100-09 MG/50ML)
     Route: 065
  21. PULMICORT TURBUHALER [Concomitant]
     Active Substance: BUDESONIDE
     Indication: ASTHMA
     Route: 065
  22. FLONASE (UNITED STATES) [Concomitant]
     Dosage: 50 MCG/ACT
     Route: 065
  23. SINGULAIR [Concomitant]
     Active Substance: MONTELUKAST SODIUM
     Indication: ASTHMA
     Route: 048
  24. COLACE [Concomitant]
     Active Substance: DOCUSATE SODIUM

REACTIONS (10)
  - Tinnitus [Recovering/Resolving]
  - Asthma [Unknown]
  - Pneumonia [Recovered/Resolved]
  - Weight decreased [Unknown]
  - Asthma [Recovered/Resolved]
  - Tinnitus [Recovering/Resolving]
  - Deafness neurosensory [Not Recovered/Not Resolved]
  - Anxiety [Recovered/Resolved]
  - Otorrhoea [Unknown]
  - Anxiety [Unknown]

NARRATIVE: CASE EVENT DATE: 20160603
